FAERS Safety Report 4399582-8 (Version None)
Quarter: 2004Q3

REPORT INFORMATION
  Report Type: 
  Country: None (occurrence: None)
  Receive Date: 20040712
  Receipt Date: 20040621
  Transmission Date: 20050211
  Serious: No
  Sender: FDA-Public Use
  Company Number: F04200400190

PATIENT
  Age: 67 Year
  Sex: Female

DRUGS (6)
  1. ARIXTRA [Suspect]
     Indication: KNEE ARTHROPLASTY
     Dosage: 2.5 MG OD
     Route: 058
     Dates: start: 20040602, end: 20040615
  2. ARIXTRA [Suspect]
     Indication: THROMBOSIS PROPHYLAXIS
     Dosage: 2.5 MG OD
     Route: 058
     Dates: start: 20040602, end: 20040615
  3. L-THYROXIN 50 (LEVOTHYROXINE SODIUM) [Concomitant]
  4. GLUCOPHAGE 850 (METFORMIN HYDROCHLORIDE) [Concomitant]
  5. VIOXX [Concomitant]
  6. TRAMAL 100 (TRAMADOL HYDROCHLORIDE) [Concomitant]

REACTIONS (3)
  - FALL [None]
  - HAEMARTHROSIS [None]
  - JOINT EFFUSION [None]
